FAERS Safety Report 16182236 (Version 5)
Quarter: 2019Q4

REPORT INFORMATION
  Report Type: Report from Study
  Country: CN (occurrence: CN)
  Receive Date: 20190410
  Receipt Date: 20191018
  Transmission Date: 20200122
  Serious: Yes (Death, Life-Threatening, Hospitalization, Disabling)
  Sender: FDA-Public Use
  Company Number: CN-B.I. PHARMACEUTICALS,INC./RIDGEFIELD-2019-BI-009310

PATIENT
  Age: 75 Year
  Sex: Female
  Weight: 50 kg

DRUGS (47)
  1. ALANYL GLUTAMINE [Concomitant]
     Active Substance: ALANYL GLUTAMINE
     Indication: PRODUCT USED FOR UNKNOWN INDICATION
     Route: 065
     Dates: start: 20190303, end: 20190304
  2. HEPARIN SODIUM. [Concomitant]
     Active Substance: HEPARIN SODIUM
     Route: 050
     Dates: start: 20190227, end: 20190227
  3. LOW MOLECULAR WEIGHT HEPARIN [Concomitant]
     Active Substance: UNSPECIFIED INGREDIENT
     Indication: PROPHYLAXIS
     Route: 065
     Dates: start: 20190220, end: 20190221
  4. VITAMIN K1 [Concomitant]
     Active Substance: PHYTONADIONE
     Indication: PROCOAGULANT THERAPY
     Route: 050
     Dates: start: 20190227, end: 20190227
  5. CALCIUM GLUCONATE. [Concomitant]
     Active Substance: CALCIUM GLUCONATE
     Indication: CHRONIC KIDNEY DISEASE
     Dosage: 10%
     Route: 050
     Dates: start: 20190301, end: 20190301
  6. SODIUM CHLORIDE. [Concomitant]
     Active Substance: SODIUM CHLORIDE
     Indication: CHRONIC KIDNEY DISEASE
     Dosage: 0.9%
     Route: 050
     Dates: start: 20190221, end: 20190221
  7. SODIUM BICARBONATE. [Concomitant]
     Active Substance: SODIUM BICARBONATE
     Indication: AZOTAEMIA
  8. TICAGRELOR. [Concomitant]
     Active Substance: TICAGRELOR
     Indication: CORONARY ARTERY DISEASE
     Route: 065
     Dates: start: 20190228, end: 20190302
  9. PLAVIX [Concomitant]
     Active Substance: CLOPIDOGREL BISULFATE
     Indication: PRODUCT USED FOR UNKNOWN INDICATION
     Dosage: FORM OF ADMIN: PIECE
     Route: 048
     Dates: start: 20190122, end: 20190226
  10. L-CARNITINE [Concomitant]
     Active Substance: LEVOCARNITINE
     Route: 065
     Dates: start: 20190227, end: 20190227
  11. HEPARIN SODIUM. [Concomitant]
     Active Substance: HEPARIN SODIUM
     Route: 050
     Dates: start: 20190301, end: 20190301
  12. CALCIUM GLUCONATE. [Concomitant]
     Active Substance: CALCIUM GLUCONATE
     Indication: AZOTAEMIA
  13. SODIUM CHLORIDE. [Concomitant]
     Active Substance: SODIUM CHLORIDE
     Indication: AZOTAEMIA
     Dosage: 10%
     Route: 050
     Dates: start: 20190225, end: 20190225
  14. SODIUM BICARBONATE. [Concomitant]
     Active Substance: SODIUM BICARBONATE
     Indication: CHRONIC KIDNEY DISEASE
     Dosage: 5%
     Route: 050
     Dates: start: 20190227, end: 20190227
  15. L-CARNITINE [Concomitant]
     Active Substance: LEVOCARNITINE
     Route: 065
     Dates: start: 20190225, end: 20190225
  16. HEPARIN SODIUM. [Concomitant]
     Active Substance: HEPARIN SODIUM
     Indication: CHRONIC KIDNEY DISEASE
     Route: 050
     Dates: start: 20190219, end: 20190219
  17. LIDOCAINE HYDROCHLORIDE. [Concomitant]
     Active Substance: LIDOCAINE HYDROCHLORIDE
     Route: 050
     Dates: start: 20190220, end: 20190220
  18. MONTMORILLONITE [Concomitant]
     Active Substance: MONTMORILLONITE
     Indication: DIARRHOEA
     Dosage: POWDER
     Route: 065
     Dates: start: 20190226, end: 20190226
  19. ISOSORBIDE MONONITRATE. [Concomitant]
     Active Substance: ISOSORBIDE MONONITRATE
     Indication: PRODUCT USED FOR UNKNOWN INDICATION
     Route: 048
     Dates: start: 20190122, end: 20190226
  20. LIDOCAINE HYDROCHLORIDE. [Concomitant]
     Active Substance: LIDOCAINE HYDROCHLORIDE
     Indication: PROPHYLAXIS
     Route: 050
     Dates: start: 20190219, end: 20190219
  21. RABEPRAZOLE SODIUM. [Concomitant]
     Active Substance: RABEPRAZOLE SODIUM
     Indication: PROPHYLAXIS
     Route: 065
     Dates: start: 20190226, end: 20190226
  22. SODIUM CITRATE. [Concomitant]
     Active Substance: SODIUM CITRATE
     Indication: CHRONIC KIDNEY DISEASE
     Dosage: SOLUTION
     Route: 050
     Dates: start: 20190227, end: 20190227
  23. VITAMIN K1 [Concomitant]
     Active Substance: PHYTONADIONE
     Route: 050
     Dates: start: 20190301, end: 20190301
  24. FRESH FROZEN PLASMA [Concomitant]
     Active Substance: HUMAN PLASMA
     Route: 050
     Dates: start: 20190301, end: 20190301
  25. REDUCED GLUTATHIONE SODIUM [Concomitant]
     Active Substance: GLUTATHIONE
     Indication: HEPATIC FAILURE
     Route: 065
     Dates: start: 20190226, end: 20190227
  26. TERBUTALINE SULPHATE [Concomitant]
     Active Substance: TERBUTALINE SULFATE
     Indication: PNEUMONIA
     Dosage: FORM OF ADMIN: ATOMIZING SOLUTION
     Route: 065
     Dates: start: 20190221, end: 20190227
  27. METOPROLOL SUCCINATE. [Concomitant]
     Active Substance: METOPROLOL SUCCINATE
     Indication: ATRIAL FIBRILLATION
     Dosage: FORM OF ADMIN: SUSTAINED RELEASE TABLETS
     Route: 065
     Dates: start: 20190220, end: 20190220
  28. METOPROLOL SUCCINATE. [Concomitant]
     Active Substance: METOPROLOL SUCCINATE
     Dosage: FORM OF ADMIN: SUSTAINED RELEASE TABLETS
     Route: 050
     Dates: start: 20190225, end: 20190225
  29. HEPARIN SODIUM. [Concomitant]
     Active Substance: HEPARIN SODIUM
     Route: 065
     Dates: start: 20190221
  30. VITAMIN K1 [Concomitant]
     Active Substance: PHYTONADIONE
     Route: 050
     Dates: start: 20190228, end: 20190228
  31. SODIUM CHLORIDE. [Concomitant]
     Active Substance: SODIUM CHLORIDE
     Dosage: 0.9%
     Route: 050
     Dates: start: 20190227, end: 20190227
  32. IDARUCIZUMAB [Suspect]
     Active Substance: IDARUCIZUMAB
     Indication: PROCOAGULANT THERAPY
     Dosage: STRENGTH: 2.5 G/ VIAL?TWO SEPARATE INFUSIONS OF 2.5 G, NO MORE THAN 15 MINUTES APART
     Route: 042
     Dates: start: 20190219, end: 20190219
  33. L-CARNITINE [Concomitant]
     Active Substance: LEVOCARNITINE
     Route: 065
     Dates: start: 20190223, end: 20190223
  34. HEPARIN SODIUM. [Concomitant]
     Active Substance: HEPARIN SODIUM
     Route: 050
     Dates: start: 20190223, end: 20190223
  35. HEPARIN SODIUM. [Concomitant]
     Active Substance: HEPARIN SODIUM
     Route: 050
     Dates: start: 20190225, end: 20190225
  36. FRESH FROZEN PLASMA [Concomitant]
     Active Substance: HUMAN PLASMA
     Route: 050
     Dates: start: 20190228, end: 20190228
  37. FRESH FROZEN PLASMA [Concomitant]
     Active Substance: HUMAN PLASMA
     Route: 050
     Dates: start: 20190302, end: 20190302
  38. L-CARNITINE [Concomitant]
     Active Substance: LEVOCARNITINE
     Indication: AZOTAEMIA
     Route: 065
     Dates: start: 20190221
  39. HEPARIN SODIUM. [Concomitant]
     Active Substance: HEPARIN SODIUM
     Indication: AZOTAEMIA
     Route: 050
     Dates: start: 20190220, end: 20190221
  40. SODIUM CITRATE. [Concomitant]
     Active Substance: SODIUM CITRATE
     Indication: AZOTAEMIA
  41. CLOPIDOGREL HYDROGEN SULPHATE [Concomitant]
     Active Substance: CLOPIDOGREL BISULFATE
     Indication: PRODUCT USED FOR UNKNOWN INDICATION
     Route: 065
     Dates: start: 20190122, end: 20190226
  42. CLOPIDOGREL HYDROGEN SULPHATE [Concomitant]
     Active Substance: CLOPIDOGREL BISULFATE
     Indication: CORONARY ARTERY DISEASE
     Dosage: 1 PIECE
     Route: 065
     Dates: end: 20190226
  43. FRESH FROZEN PLASMA [Concomitant]
     Active Substance: HUMAN PLASMA
     Route: 050
     Dates: start: 20190303, end: 20190303
  44. BUDESONIDE. [Concomitant]
     Active Substance: BUDESONIDE
     Indication: PNEUMONIA
     Dosage: FORM OF ADMIN: SUSPENSION
     Route: 055
     Dates: start: 20190221, end: 20190227
  45. METOPROLOL SUCCINATE. [Concomitant]
     Active Substance: METOPROLOL SUCCINATE
     Indication: HYPERTENSION
     Dosage: FORM OF ADMIN: SUSTAINED RELEASE TABLETS
     Route: 050
     Dates: start: 20190222, end: 20190222
  46. L-CARNITINE [Concomitant]
     Active Substance: LEVOCARNITINE
     Indication: CHRONIC KIDNEY DISEASE
     Route: 065
     Dates: start: 20190221, end: 20190221
  47. FRESH FROZEN PLASMA [Concomitant]
     Active Substance: HUMAN PLASMA
     Indication: PROCOAGULANT THERAPY
     Route: 050
     Dates: start: 20190222, end: 20190222

REACTIONS (8)
  - Multiple organ dysfunction syndrome [Fatal]
  - Thalamic infarction [Unknown]
  - Thrombocytopenia [Unknown]
  - Anaemia [Recovered/Resolved]
  - Gastrointestinal haemorrhage [Unknown]
  - Pneumonia [Unknown]
  - Cardiac failure chronic [Unknown]
  - Hepatic function abnormal [Unknown]

NARRATIVE: CASE EVENT DATE: 20190220
